FAERS Safety Report 8402823-0 (Version None)
Quarter: 2012Q2

REPORT INFORMATION
  Report Type: 
  Country: None (occurrence: None)
  Receive Date: 20120323
  Receipt Date: 20110613
  Transmission Date: 20120825
  Serious: Yes (Hospitalization, Other)
  Sender: FDA-Public Use
  Company Number: 163-21880-11040916

PATIENT
  Age: 74 Year
  Sex: Male

DRUGS (5)
  1. COUMADIN [Concomitant]
  2. XANAX [Concomitant]
  3. REVLIMID [Suspect]
     Indication: MULTIPLE MYELOMA
     Dosage: 25 MG, 1 IN 1 D, PO
     Route: 048
     Dates: start: 20110124
  4. ZESTORETIC [Concomitant]
  5. DEXAMEHTASONE(DEXAMETHASONE) [Concomitant]

REACTIONS (3)
  - PNEUMONIA [None]
  - URINARY TRACT INFECTION [None]
  - ANAEMIA [None]
